FAERS Safety Report 10233292 (Version 6)
Quarter: 2016Q3

REPORT INFORMATION
  Report Type: Spontaneous
  Country: US (occurrence: US)
  Receive Date: 20140612
  Receipt Date: 20160902
  Transmission Date: 20161109
  Serious: Yes (Hospitalization, Other)
  Sender: FDA-Public Use
  Company Number: US-PFIZER INC-2014159413

PATIENT
  Age: 81 Year
  Sex: Female
  Weight: 62 kg

DRUGS (13)
  1. PREMARIN [Suspect]
     Active Substance: ESTROGENS, CONJUGATED
     Indication: HOT FLUSH
     Dosage: 0.625 MG, UNK (20 DAYS A MONTH)
     Dates: start: 197808
  2. BIOTIN [Concomitant]
     Active Substance: BIOTIN
     Dosage: UNK
  3. PREMARIN [Suspect]
     Active Substance: ESTROGENS, CONJUGATED
     Indication: FEELING ABNORMAL
     Dosage: 0.625 MG, 1X/DAY FOR THE FIRST 1-20 OR 25 DAYS
     Route: 048
  4. LISINOPRIL. [Concomitant]
     Active Substance: LISINOPRIL
     Dosage: 5 MG, 1X/DAY
     Route: 048
  5. PREMARIN [Suspect]
     Active Substance: ESTROGENS, CONJUGATED
     Dosage: 0.3 MG, 1X/DAY
     Route: 048
     Dates: start: 2012
  6. LISINOPRIL. [Concomitant]
     Active Substance: LISINOPRIL
     Indication: HYPERTENSION
     Dosage: 2.5 MG, 1X/DAY
     Route: 048
     Dates: start: 2014
  7. PROVERA [Suspect]
     Active Substance: MEDROXYPROGESTERONE ACETATE
     Indication: HORMONE REPLACEMENT THERAPY
     Dosage: 2.5 MG, UNK (10 DAYS IN A MONTH (16TH DAY OF MONTH TO 25TH DAY OF MONTH)
     Route: 048
  8. PROVERA [Suspect]
     Active Substance: MEDROXYPROGESTERONE ACETATE
     Indication: HYPERHIDROSIS
  9. VITAMIN D3 [Concomitant]
     Active Substance: CHOLECALCIFEROL
     Indication: BONE DISORDER
     Dosage: 1 DF, DAILY
  10. PROVERA [Suspect]
     Active Substance: MEDROXYPROGESTERONE ACETATE
     Indication: HOT FLUSH
     Dosage: 0.25 MG, 1X/DAY FOR DAYS 16-25  OF THE MONTH
     Route: 048
     Dates: start: 201510
  11. METOPROLOL. [Concomitant]
     Active Substance: METOPROLOL
     Indication: CARDIAC DISORDER
     Dosage: 12.5 MG, 1X/DAY (IT WAS A 25 MG PILL, BUT SHE ONLY TAKES HALF OF IT A DAY)
     Route: 048
     Dates: start: 201508
  12. PREMARIN [Suspect]
     Active Substance: ESTROGENS, CONJUGATED
     Indication: HYPERHIDROSIS
     Dosage: 0.625 MG, UNK (22 DAYS IN A MONTH)
     Route: 048
  13. PREMARIN [Suspect]
     Active Substance: ESTROGENS, CONJUGATED
     Indication: LIFE SUPPORT
     Dosage: 0.325 MG, 1X/DAY
     Route: 048

REACTIONS (20)
  - Feeling abnormal [Unknown]
  - Intentional product misuse [Unknown]
  - Sluggishness [Recovered/Resolved]
  - Wrong technique in product usage process [Unknown]
  - Mammogram abnormal [Unknown]
  - Blood cholesterol increased [Unknown]
  - Uterine leiomyoma [Unknown]
  - Uterine prolapse [Unknown]
  - Inappropriate schedule of drug administration [Unknown]
  - Blood disorder [Unknown]
  - Coronary artery occlusion [Unknown]
  - Postmenopausal haemorrhage [Recovering/Resolving]
  - Breast tenderness [Unknown]
  - Body height decreased [Unknown]
  - Fatigue [Recovered/Resolved]
  - Drug prescribing error [Unknown]
  - Vaginal prolapse [Unknown]
  - Asthenia [Unknown]
  - Breast oedema [Unknown]
  - Muscle spasms [Recovering/Resolving]

NARRATIVE: CASE EVENT DATE: 2012
